FAERS Safety Report 5505622-2 (Version None)
Quarter: 2007Q4

REPORT INFORMATION
  Report Type: 
  Country: None (occurrence: None)
  Receive Date: 20071102
  Receipt Date: 20071029
  Transmission Date: 20080405
  Serious: Yes (Death)
  Sender: FDA-Public Use
  Company Number: GR-ABBOTT-07P-066-0422716-00

PATIENT
  Age: 71 Year
  Sex: Male
  Weight: 70 kg

DRUGS (1)
  1. ZEMPLAR [Suspect]
     Indication: HYPERPARATHYROIDISM SECONDARY
     Route: 042
     Dates: start: 20070401, end: 20071020

REACTIONS (3)
  - INFECTED SKIN ULCER [None]
  - SEPTIC SHOCK [None]
  - SKIN ULCER [None]
